FAERS Safety Report 16716752 (Version 9)
Quarter: 2022Q4

REPORT INFORMATION
  Report Type: Report from Study
  Country: GB (occurrence: None)
  Receive Date: 20190819
  Receipt Date: 20221014
  Transmission Date: 20230113
  Serious: Yes (Hospitalization)
  Sender: FDA-Public Use
  Company Number: GB-ROCHE-2372961

PATIENT
  Age: 71 Year
  Sex: Male
  Weight: 63.4 kg

DRUGS (23)
  1. ATEZOLIZUMAB [Suspect]
     Active Substance: ATEZOLIZUMAB
     Indication: Small cell lung cancer
     Dosage: ON 28/JUN/2019, HE RECEIVED MOST RECENT DOSE OF BLINDED ATEZOLIZUMAB PRIOR TO ONSET OF SERIOUS ADVER
     Route: 041
     Dates: start: 20190510
  2. CARBOPLATIN [Suspect]
     Active Substance: CARBOPLATIN
     Indication: Small cell lung cancer
     Dosage: DOSE: AREA UNDER CURVE OF 6 MG/ML/MIN?ON 28/JUN/2019, HE RECEIVED MOST RECENT DOSE OF CARBOPLATION (
     Route: 042
     Dates: start: 20190510
  3. PEMETREXED [Suspect]
     Active Substance: PEMETREXED
     Indication: Small cell lung cancer
     Dosage: ON 28/JUN/2019, RECEIVED MOST RECENT DOSE OF PREMETEXED AT 875 MG PRIOR TO AE AND SAE
     Route: 042
     Dates: start: 20190510
  4. APREPITANT [Concomitant]
     Active Substance: APREPITANT
     Indication: Nausea
     Route: 048
     Dates: start: 20190530
  5. HYPROMELLOSES [Concomitant]
     Active Substance: HYPROMELLOSES
     Indication: Eye pruritus
     Route: 047
     Dates: start: 20190530
  6. MAGNESIUM CITRATE [Concomitant]
     Active Substance: MAGNESIUM CITRATE
     Indication: Blood magnesium decreased
     Dates: start: 20190628, end: 20190726
  7. CALCIUM CARBONATE [Concomitant]
     Active Substance: CALCIUM CARBONATE
     Indication: Blood calcium decreased
     Dosage: DOSE UNIT OTHER
     Route: 048
     Dates: start: 20190627
  8. AMOXICILLIN\CLAVULANATE POTASSIUM [Concomitant]
     Active Substance: AMOXICILLIN\CLAVULANATE POTASSIUM
     Route: 048
     Dates: start: 20190716, end: 20190726
  9. POLYETHYLENE GLYCOLS [Concomitant]
     Active Substance: POLYETHYLENE GLYCOLS
     Indication: Constipation
     Dosage: 1 OTHER
     Route: 048
     Dates: start: 20190716
  10. HUMAN RED BLOOD CELL [Concomitant]
     Active Substance: HUMAN RED BLOOD CELL
     Indication: Anaemia
     Dosage: 2 UNIT
     Route: 042
     Dates: start: 20190716, end: 20190721
  11. HUMAN RED BLOOD CELL [Concomitant]
     Active Substance: HUMAN RED BLOOD CELL
     Dosage: 2 UNIT
     Route: 042
     Dates: start: 20190730, end: 20190802
  12. MAGNESIUM ASPARTATE [Concomitant]
     Active Substance: MAGNESIUM ASPARTATE
     Indication: Blood magnesium decreased
     Dosage: 10 OTHER
     Route: 048
     Dates: start: 20190802, end: 20190806
  13. MAGNESIUM ASPARTATE [Concomitant]
     Active Substance: MAGNESIUM ASPARTATE
     Dosage: 10 (MEDICATION DOSE UNIT: OTHER)
     Route: 048
     Dates: start: 20190802, end: 20190806
  14. POTASSIUM BICARBONATE\POTASSIUM CHLORIDE [Concomitant]
     Active Substance: POTASSIUM BICARBONATE\POTASSIUM CHLORIDE
     Indication: Blood potassium decreased
     Dosage: 2 OTHER
     Route: 048
     Dates: start: 20190802, end: 20190806
  15. MOVICOL [Concomitant]
     Active Substance: POLYETHYLENE GLYCOL 3350\POTASSIUM CHLORIDE\SODIUM BICARBONATE\SODIUM CHLORIDE
     Indication: Constipation
     Route: 065
     Dates: start: 20190520, end: 20191114
  16. MAGNESIUM CITRATE [Concomitant]
     Active Substance: MAGNESIUM CITRATE
     Indication: Blood magnesium decreased
     Dates: start: 20190628, end: 20190726
  17. MAGNESIUM CITRATE [Concomitant]
     Active Substance: MAGNESIUM CITRATE
     Route: 048
     Dates: start: 20190628, end: 20190726
  18. DEXAMETHASONE [Concomitant]
     Active Substance: DEXAMETHASONE
     Route: 048
     Dates: start: 20190530, end: 20190630
  19. DOMPERIDONE [Concomitant]
     Active Substance: DOMPERIDONE
     Route: 048
     Dates: start: 20190511, end: 20190630
  20. RANITIDINE [Concomitant]
     Active Substance: RANITIDINE
     Route: 048
     Dates: start: 20190510, end: 20190703
  21. FOLIC ACID [Concomitant]
     Active Substance: FOLIC ACID
     Route: 048
     Dates: start: 20190507, end: 20190719
  22. SENNA [Concomitant]
     Active Substance: SENNA LEAF\SENNOSIDES\SENNOSIDES A AND B
     Indication: Constipation
     Route: 048
     Dates: start: 20190716
  23. MAGNESIUM;SODIUM CHLORIDE [Concomitant]
     Indication: Blood magnesium decreased
     Route: 042
     Dates: start: 20190621, end: 20190726

REACTIONS (1)
  - Upper gastrointestinal haemorrhage [Recovered/Resolved]

NARRATIVE: CASE EVENT DATE: 20190730
